FAERS Safety Report 6409145-8 (Version None)
Quarter: 2009Q4

REPORT INFORMATION
  Report Type: 
  Country: None (occurrence: None)
  Receive Date: 20091021
  Receipt Date: 20091008
  Transmission Date: 20100525
  Serious: Yes (Other)
  Sender: FDA-Public Use
  Company Number: PHEH2009US13414

PATIENT
  Sex: Male

DRUGS (1)
  1. ZOMETA [Suspect]
     Dosage: UNK, UNK

REACTIONS (6)
  - CHILLS [None]
  - GINGIVAL PAIN [None]
  - MYALGIA [None]
  - OSTEONECROSIS [None]
  - PAIN IN JAW [None]
  - PYREXIA [None]
